FAERS Safety Report 5604117-5 (Version None)
Quarter: 2008Q1

REPORT INFORMATION
  Report Type: 
  Country: None (occurrence: None)
  Receive Date: 20080123
  Receipt Date: 20080123
  Transmission Date: 20080703
  Serious: Yes (Life-Threatening)
  Sender: FDA-Public Use
  Company Number: None

PATIENT
  Sex: Female
  Weight: 65.8 kg

DRUGS (1)
  1. DOXORUBICIN LIPOSOME INJECTION 20 MG/10 ML BEN VENUE LABORATORIES, INC [Suspect]
     Indication: HODGKIN'S DISEASE
     Dosage: 17 MG DAY 1+8 Q 21 DAYS IV DRIP
     Route: 041
     Dates: start: 20080116, end: 20080116

REACTIONS (3)
  - FEELING ABNORMAL [None]
  - INFUSION RELATED REACTION [None]
  - THROAT TIGHTNESS [None]
